FAERS Safety Report 12207442 (Version 2)
Quarter: 2016Q2

REPORT INFORMATION
  Report Type: Spontaneous
  Country: US (occurrence: US)
  Receive Date: 20160324
  Receipt Date: 20160428
  Transmission Date: 20160815
  Serious: Yes (Hospitalization, Other)
  Sender: FDA-Public Use
  Company Number: US-PFIZER INC-2016167938

PATIENT
  Age: 56 Year
  Sex: Male
  Weight: 86.17 kg

DRUGS (7)
  1. LYRICA [Suspect]
     Active Substance: PREGABALIN
     Indication: NEUROPATHY PERIPHERAL
  2. LYRICA [Suspect]
     Active Substance: PREGABALIN
     Indication: DIABETIC NEUROPATHY
     Dosage: 100 MG, 3X/DAY
     Route: 048
     Dates: start: 2006
  3. FOLIC ACID. [Concomitant]
     Active Substance: FOLIC ACID
     Dosage: 400 UG, 1X/DAY
     Route: 048
     Dates: start: 201601
  4. GLIMEPIRIDE. [Concomitant]
     Active Substance: GLIMEPIRIDE
     Dosage: 3 MG, UNK
  5. METFORMIN [Concomitant]
     Active Substance: METFORMIN HYDROCHLORIDE
     Indication: DIABETES PROPHYLAXIS
     Dosage: 1000 MG, 2X/DAY
     Route: 048
  6. VITAMIN D /00107901/ [Concomitant]
     Active Substance: ERGOCALCIFEROL
     Indication: SUPPLEMENTATION THERAPY
     Dosage: 5000 IU, 1X/DAY
     Route: 048
     Dates: start: 2014
  7. GLIMEPIRIDE. [Concomitant]
     Active Substance: GLIMEPIRIDE
     Dosage: 2 MG, UNK

REACTIONS (22)
  - Guillain-Barre syndrome [Recovering/Resolving]
  - Contusion [Unknown]
  - Tremor [Recovering/Resolving]
  - Dysphonia [Recovering/Resolving]
  - Fall [Unknown]
  - Paralysis [Recovered/Resolved]
  - Headache [Unknown]
  - Diarrhoea [Unknown]
  - Gait disturbance [Recovering/Resolving]
  - Dyskinesia [Recovering/Resolving]
  - Blood magnesium decreased [Unknown]
  - Gastroenteritis viral [Unknown]
  - Fine motor skill dysfunction [Recovering/Resolving]
  - Fear of falling [Not Recovered/Not Resolved]
  - Nervousness [Recovering/Resolving]
  - Insomnia [Unknown]
  - Anxiety [Unknown]
  - Dysphagia [Unknown]
  - Blood pressure increased [Unknown]
  - Fatigue [Recovering/Resolving]
  - Nausea [Unknown]
  - Hyperhidrosis [Unknown]

NARRATIVE: CASE EVENT DATE: 201601
